FAERS Safety Report 15801257 (Version 2)
Quarter: 2019Q1

REPORT INFORMATION
  Report Type: Spontaneous
  Country: DE (occurrence: DE)
  Receive Date: 20190109
  Receipt Date: 20190319
  Transmission Date: 20190417
  Serious: Yes (Hospitalization, Other)
  Sender: FDA-Public Use
  Company Number: DE-CELLTRION INC.-2019DE017707

PATIENT

DRUGS (1)
  1. INFLECTRA [Suspect]
     Active Substance: INFLIXIMAB-DYYB
     Indication: RHEUMATOID ARTHRITIS
     Dosage: EVERY 8 WEEKS, IN THE BEGINNING MORE OFTEN
     Route: 065
     Dates: end: 201806

REACTIONS (4)
  - Myocardial infarction [Unknown]
  - Feeling abnormal [Unknown]
  - Palpitations [Unknown]
  - Chest discomfort [Unknown]
